FAERS Safety Report 7393997-1 (Version None)
Quarter: 2011Q2

REPORT INFORMATION
  Report Type: 
  Country: None (occurrence: None)
  Receive Date: 20110405
  Receipt Date: 20100709
  Transmission Date: 20111010
  Serious: No
  Sender: FDA-Public Use
  Company Number: US-AMGEN-KDL423486

PATIENT
  Sex: Female

DRUGS (6)
  1. NEUPOGEN [Suspect]
     Indication: CHEMOTHERAPY
     Dosage: UNK UNK, UNK
  2. MULTIVITAMIN [Concomitant]
     Dosage: UNK UNK, UNK
  3. NEULASTA [Suspect]
     Indication: CHEMOTHERAPY
     Dosage: UNK UNK, UNK
  4. BENDAMUSTINE [Concomitant]
     Dosage: UNK UNK, UNK
  5. RITUXIMAB [Concomitant]
     Dosage: UNK UNK, UNK
  6. CALCITONIN [Concomitant]
     Dosage: UNK UNK, UNK

REACTIONS (7)
  - ALOPECIA [None]
  - MEMORY IMPAIRMENT [None]
  - HYPERSOMNIA [None]
  - BACK PAIN [None]
  - PAIN IN EXTREMITY [None]
  - PAIN [None]
  - FATIGUE [None]
